FAERS Safety Report 14910874 (Version 2)
Quarter: 2018Q4

REPORT INFORMATION
  Report Type: Report from Study
  Country: CA (occurrence: CA)
  Receive Date: 20180517
  Receipt Date: 20181011
  Transmission Date: 20190204
  Serious: Yes (Hospitalization, Other)
  Sender: FDA-Public Use
  Company Number: CA-BAUSCH-BL-2018-014160

PATIENT
  Age: 85 Year
  Sex: Female
  Weight: 52.21 kg

DRUGS (4)
  1. TIAZAC XC [Suspect]
     Active Substance: DILTIAZEM HYDROCHLORIDE
     Indication: ESSENTIAL HYPERTENSION
     Route: 065
     Dates: start: 20160125
  2. CRESTOR [Concomitant]
     Active Substance: ROSUVASTATIN CALCIUM
     Indication: HYPERLIPIDAEMIA
     Dates: start: 2005
  3. HCTZ [Concomitant]
     Active Substance: HYDROCHLOROTHIAZIDE
     Indication: HYPERTENSION
     Dates: start: 1990
  4. RAMIPRIL. [Concomitant]
     Active Substance: RAMIPRIL
     Indication: HYPERTENSION
     Dates: start: 2000

REACTIONS (2)
  - Cerebrovascular accident [Recovered/Resolved]
  - Atrial fibrillation [Unknown]

NARRATIVE: CASE EVENT DATE: 20171016
